FAERS Safety Report 15454144 (Version 3)
Quarter: 2019Q1

REPORT INFORMATION
  Report Type: Spontaneous
  Country: US (occurrence: US)
  Receive Date: 20181002
  Receipt Date: 20190214
  Transmission Date: 20190417
  Serious: Yes (Hospitalization, Other)
  Sender: FDA-Public Use
  Company Number: US-DSJP-DSU-2017-137135

PATIENT

DRUGS (1)
  1. BENICAR [Suspect]
     Active Substance: OLMESARTAN MEDOXOMIL
     Indication: PRODUCT USED FOR UNKNOWN INDICATION
     Dosage: 20 MG, UNK
     Dates: start: 20071116, end: 201503

REACTIONS (7)
  - Acute kidney injury [Unknown]
  - Gastrooesophageal reflux disease [Unknown]
  - Diverticulitis [Not Recovered/Not Resolved]
  - Large intestine polyp [Recovered/Resolved]
  - Haemorrhoids [Unknown]
  - Sprue-like enteropathy [Unknown]
  - Hiatus hernia [Unknown]

NARRATIVE: CASE EVENT DATE: 20140227
